FAERS Safety Report 5948704-3 (Version None)
Quarter: 2008Q4

REPORT INFORMATION
  Report Type: 
  Country: None (occurrence: None)
  Receive Date: 20081111
  Receipt Date: 20081028
  Transmission Date: 20090506
  Serious: Yes (Other)
  Sender: FDA-Public Use
  Company Number: CH-GENENTECH-269829

PATIENT
  Sex: Male

DRUGS (9)
  1. AVASTIN [Suspect]
     Indication: COLORECTAL CANCER
     Dosage: 500 MG, UNK
  2. SUNITINIB MALATE [Concomitant]
     Indication: DRUG USE FOR UNKNOWN INDICATION
     Dosage: 25 MG, BID
     Dates: start: 20080618
  3. FLUOROURACIL [Concomitant]
     Indication: COLORECTAL CANCER
     Dosage: 1 G, UNK
     Dates: start: 20080618
  4. FLUOROURACIL [Concomitant]
     Dosage: 2 G, UNK
     Dates: start: 20080618
  5. GEMZAR [Concomitant]
     Indication: COLORECTAL CANCER
     Dosage: 2 G, UNK
     Dates: start: 20080618
  6. LEUCOVORIN CALCIUM [Concomitant]
     Indication: COLON CANCER
     Dosage: 30 MG, UNK
     Dates: start: 20080618
  7. LEUCOVORIN CALCIUM [Concomitant]
     Dosage: 100 MG, UNK
     Dates: start: 20080618
  8. NEULASTA [Concomitant]
     Indication: DRUG USE FOR UNKNOWN INDICATION
     Dosage: UNK
     Dates: start: 20080621
  9. IRINOTECAN HCL [Concomitant]
     Indication: COLON CANCER
     Dosage: 300 MG, UNK
     Dates: start: 20080618

REACTIONS (4)
  - APHTHOUS STOMATITIS [None]
  - DIARRHOEA [None]
  - FATIGUE [None]
  - PALMAR-PLANTAR ERYTHRODYSAESTHESIA SYNDROME [None]
